FAERS Safety Report 7786954-4 (Version None)
Quarter: 2011Q3

REPORT INFORMATION
  Report Type: 
  Country: None (occurrence: None)
  Receive Date: 20110927
  Receipt Date: 20110915
  Transmission Date: 20111222
  Serious: Yes (Hospitalization, Other)
  Sender: FDA-Public Use
  Company Number: 2011MA013966

PATIENT
  Age: 68 Year
  Sex: Female

DRUGS (8)
  1. LEVOTHYROXINE SODIUM [Concomitant]
  2. RIVAROXABAN (NO PREF. NAME) [Suspect]
     Indication: THROMBOSIS
     Dosage: 10 MG;BID;PO
     Route: 048
     Dates: start: 20101002, end: 20101003
  3. MIRTAZAPINE [Concomitant]
  4. RAMIPRIL [Concomitant]
  5. ATENOLOL [Concomitant]
  6. ASPIRIN [Suspect]
     Indication: CARDIOVASCULAR DISORDER
     Dosage: 75 MG;QD;PO
     Route: 048
     Dates: end: 20101003
  7. IBUPROFEN [Suspect]
     Indication: PROCEDURAL PAIN
     Dosage: 200 MG;TID;PO
     Route: 048
     Dates: start: 20101003, end: 20101003
  8. ACETAMINOPHEN AND CODEINE PHOSPHATE [Concomitant]

REACTIONS (4)
  - HIP ARTHROPLASTY [None]
  - DRUG INTERACTION [None]
  - HYPOTENSION [None]
  - OESOPHAGITIS HAEMORRHAGIC [None]
